FAERS Safety Report 5035431-2 (Version None)
Quarter: 2006Q2

REPORT INFORMATION
  Report Type: 
  Country: None (occurrence: None)
  Receive Date: 20060526
  Receipt Date: 20060217
  Transmission Date: 20061013
  Serious: No
  Sender: FDA-Public Use
  Company Number: FABR-11411

PATIENT
  Age: 54 Year
  Sex: Female
  Weight: 82.5547 kg

DRUGS (14)
  1. FABRAZYME [Suspect]
     Indication: FABRY'S DISEASE
     Dosage: 90 MG Q2WKS IV
     Route: 042
     Dates: start: 20040226
  2. POTASSIUM SUPPLEMENT [Suspect]
     Indication: HYPOKALAEMIA
  3. POTASSIUM SUPPLEMENT [Suspect]
     Indication: PROPHYLAXIS
  4. LASIX [Suspect]
     Dosage: 40 MG QD
  5. COZAAR [Suspect]
     Dosage: 100 MG QD
  6. NIFEDIPINE [Suspect]
     Dosage: 30 MG QD
  7. ZYRTEC [Suspect]
     Dosage: 10 MG QD
  8. CENTRUM SILVER [Suspect]
  9. CENTRUM SILVER [Concomitant]
  10. POTASSIUM SUPPLEMENT [Concomitant]
  11. LASIX [Concomitant]
  12. COZAAR [Concomitant]
  13. NIFEDIPINE [Concomitant]
  14. ZYRTEC [Concomitant]

REACTIONS (4)
  - BLOOD POTASSIUM INCREASED [None]
  - CHOLELITHIASIS [None]
  - NAUSEA [None]
  - VOMITING [None]
